FAERS Safety Report 25623461 (Version 1)
Quarter: 2025Q3

REPORT INFORMATION
  Report Type: Spontaneous
  Country: US (occurrence: None)
  Receive Date: 20250730
  Receipt Date: 20250730
  Transmission Date: 20251021
  Serious: No
  Sender: FDA-CTU
  Company Number: None

PATIENT
  Age: 58 Year
  Sex: Female
  Weight: 83.25 kg

DRUGS (9)
  1. TALTZ [Suspect]
     Active Substance: IXEKIZUMAB
     Indication: Psoriasis
     Route: 058
  2. NEBIVOLOL 5MG TAB [Concomitant]
     Dates: start: 20250603
  3. CYMBALTA 30MG CAP [Concomitant]
     Dates: start: 20250603
  4. XANAX 0.5MG TAB [Concomitant]
     Dates: start: 20250603
  5. HYDROCODONE/APAP 10/325MG TAB [Concomitant]
     Dates: start: 20250603
  6. MAGNESIUM OXIDE 400MG TAB [Concomitant]
     Dates: start: 20250603
  7. VITMAIN B12 1000MCG TAB [Concomitant]
     Dates: start: 20250603
  8. RIFAMIN 300MG CAP [Concomitant]
     Dates: start: 20250603
  9. ISONIAZID 300MG TAB [Concomitant]
     Dates: start: 20250603

REACTIONS (6)
  - Musculoskeletal stiffness [None]
  - Skin exfoliation [None]
  - Haemorrhage [None]
  - Skin infection [None]
  - Erythema [None]
  - Pain in extremity [None]

NARRATIVE: CASE EVENT DATE: 20250730
